FAERS Safety Report 12500260 (Version 3)
Quarter: 2016Q3

REPORT INFORMATION
  Report Type: Report from Study
  Country: GB (occurrence: GB)
  Receive Date: 20160627
  Receipt Date: 20160726
  Transmission Date: 20161109
  Serious: Yes (Death, Life-Threatening, Hospitalization)
  Sender: FDA-Public Use
  Company Number: GB-ROCHE-1559974

PATIENT
  Age: 77 Year
  Sex: Female
  Weight: 50.3 kg

DRUGS (11)
  1. AMLODIPINE [Concomitant]
     Active Substance: AMLODIPINE BESYLATE
  2. OMEPRAZOLE. [Concomitant]
     Active Substance: OMEPRAZOLE
  3. CO-TENIDONE [Concomitant]
     Active Substance: ATENOLOL\CHLORTHALIDONE
  4. GLIMEPIRIDE. [Concomitant]
     Active Substance: GLIMEPIRIDE
  5. LOPERAMIDE [Concomitant]
     Active Substance: LOPERAMIDE
     Route: 065
     Dates: start: 201502
  6. CANDESARTAN [Concomitant]
     Active Substance: CANDESARTAN
  7. THYROXINE [Concomitant]
     Active Substance: LEVOTHYROXINE
  8. BEVACIZUMAB [Suspect]
     Active Substance: BEVACIZUMAB
     Indication: COLORECTAL ADENOCARCINOMA
     Dosage: LAST DOSE PRIOR TO EVENT ON 26/FEB/2015
     Route: 042
     Dates: start: 20150205
  9. METFORMIN [Concomitant]
     Active Substance: METFORMIN HYDROCHLORIDE
     Route: 065
     Dates: start: 19940615
  10. SITAGLIPTIN [Concomitant]
     Active Substance: SITAGLIPTIN
  11. ATORVASTATIN [Concomitant]
     Active Substance: ATORVASTATIN

REACTIONS (1)
  - Cardiac arrest [Fatal]

NARRATIVE: CASE EVENT DATE: 20150321
